FAERS Safety Report 8921894 (Version 3)
Quarter: 2012Q4

REPORT INFORMATION
  Report Type: 
  Country: US (occurrence: US)
  Receive Date: 20121121
  Receipt Date: 20121226
  Transmission Date: 20130627
  Serious: Yes (Other)
  Sender: FDA-Public Use
  Company Number: US-PFIZER INC-2012291498

PATIENT
  Age: 54 Year
  Sex: Female
  Weight: 77.1 kg

DRUGS (1)
  1. LYRICA [Suspect]
     Indication: FIBROMYALGIA
     Dosage: 150 mg, 3x/day
     Route: 048

REACTIONS (4)
  - Back disorder [Unknown]
  - Musculoskeletal discomfort [Unknown]
  - Arthropathy [Unknown]
  - Bone disorder [Unknown]
